FAERS Safety Report 9832906 (Version 2)
Quarter: 2014Q1

REPORT INFORMATION
  Report Type: Spontaneous
  Country: US (occurrence: US)
  Receive Date: 20140121
  Receipt Date: 20140212
  Transmission Date: 20141002
  Serious: Yes (Hospitalization)
  Sender: FDA-Public Use
  Company Number: US-B.I. PHARMACEUTICALS,INC./RIDGEFIELD-2014-BI-02443BP

PATIENT
  Age: 18 Year
  Sex: Male
  Weight: 80.91 kg

DRUGS (2)
  1. PRADAXA [Suspect]
     Indication: ATRIAL FIBRILLATION
     Dosage: 150 MG
     Dates: start: 20131128, end: 20131220
  2. PROTONIX [Concomitant]
     Indication: PEPTIC ULCER
     Dosage: 40 MG
     Dates: start: 20131212

REACTIONS (4)
  - Gastrointestinal ulcer [Not Recovered/Not Resolved]
  - Liver function test abnormal [Unknown]
  - Chest pain [Unknown]
  - Abdominal pain [Unknown]
